FAERS Safety Report 12271167 (Version 1)
Quarter: 2016Q2

REPORT INFORMATION
  Report Type: Spontaneous
  Country: KR (occurrence: KR)
  Receive Date: 20160415
  Receipt Date: 20160415
  Transmission Date: 20160815
  Serious: Yes (Hospitalization, Other)
  Sender: FDA-Public Use
  Company Number: KR-GLAXOSMITHKLINE-KR2016GSK050822

PATIENT
  Age: 35 Year
  Sex: Male

DRUGS (7)
  1. PREDNISOLONE. [Suspect]
     Active Substance: PREDNISOLONE
     Indication: IMMUNOSUPPRESSION
     Dosage: 20 MG, QD
  2. TACROLIMUS. [Suspect]
     Active Substance: TACROLIMUS
     Indication: IMMUNOSUPPRESSION
     Dosage: 3 MG, UNK
  3. MYCOPHENOLIC ACID. [Suspect]
     Active Substance: MYCOPHENOLIC ACID
     Dosage: 540 MG, BID
  4. FAMCICLOVIR. [Suspect]
     Active Substance: FAMCICLOVIR
     Indication: ANTIVIRAL TREATMENT
     Dosage: 750 MG, QD
  5. PREDNISOLONE. [Suspect]
     Active Substance: PREDNISOLONE
     Dosage: 10 MG, UNK
  6. ACYCLOVIR. [Suspect]
     Active Substance: ACYCLOVIR
     Indication: ANTIVIRAL TREATMENT
     Dosage: 500 MG, BID
     Route: 042
  7. MYCOPHENOLIC ACID. [Suspect]
     Active Substance: MYCOPHENOLIC ACID
     Indication: IMMUNOSUPPRESSION
     Dosage: 720 MG, BID

REACTIONS (15)
  - Nystagmus [Unknown]
  - Varicella virus test positive [Unknown]
  - Hypoaesthesia [Unknown]
  - Facial paralysis [Recovering/Resolving]
  - Pain [Unknown]
  - Dizziness [Unknown]
  - Corneal reflex decreased [Unknown]
  - Brain stem microhaemorrhage [Unknown]
  - Varicella zoster virus infection [Unknown]
  - Herpes zoster oticus [Unknown]
  - Rash vesicular [Unknown]
  - Nausea [Unknown]
  - Neuropathy peripheral [Unknown]
  - Ear pain [Unknown]
  - Central nervous system lesion [Unknown]
